FAERS Safety Report 10629035 (Version 1)
Quarter: 2014Q4

REPORT INFORMATION
  Report Type: Spontaneous
  Country: US (occurrence: US)
  Receive Date: 20141205
  Receipt Date: 20141205
  Transmission Date: 20150529
  Serious: No
  Sender: FDA-Public Use
  Company Number: US-BRISTOL-MYERS SQUIBB COMPANY-21150800

PATIENT
  Age: 50 Year
  Sex: Male
  Weight: 107.03 kg

DRUGS (6)
  1. CELEXA [Concomitant]
     Active Substance: CITALOPRAM HYDROBROMIDE
  2. DEXTROMETHORPHAN HYDROBROMIDE. [Concomitant]
     Active Substance: DEXTROMETHORPHAN HYDROBROMIDE
  3. ABILIFY MAINTENA [Suspect]
     Active Substance: ARIPIPRAZOLE
     Indication: SCHIZOPHRENIA, PARANOID TYPE
     Dosage: GIVEN IN DELTOID ROUTE
     Route: 030
     Dates: start: 20140623
  4. SEROQUEL [Concomitant]
     Active Substance: QUETIAPINE FUMARATE
  5. ABILIFY [Suspect]
     Active Substance: ARIPIPRAZOLE
     Route: 048
     Dates: start: 2014
  6. QUININE SULFATE. [Concomitant]
     Active Substance: QUININE SULFATE

REACTIONS (2)
  - Pain in extremity [Recovered/Resolved]
  - Muscle twitching [Recovered/Resolved]

NARRATIVE: CASE EVENT DATE: 20140624
